FAERS Safety Report 20428991 (Version 2)
Quarter: 2022Q1

REPORT INFORMATION
  Report Type: Spontaneous
  Country: US (occurrence: US)
  Receive Date: 20220204
  Receipt Date: 20220309
  Transmission Date: 20220423
  Serious: Yes (Other)
  Sender: FDA-Public Use
  Company Number: US-ALLERGAN-2203271US

PATIENT
  Sex: Male

DRUGS (1)
  1. VUITY [Suspect]
     Active Substance: PILOCARPINE HYDROCHLORIDE
     Indication: Product used for unknown indication
     Route: 047

REACTIONS (3)
  - Retinal tear [Recovered/Resolved]
  - Photopsia [Recovered/Resolved]
  - Drug ineffective [Unknown]
